FAERS Safety Report 18904388 (Version 1)
Quarter: 2021Q1

REPORT INFORMATION
  Report Type: Spontaneous
  Country: US (occurrence: US)
  Receive Date: 20210217
  Receipt Date: 20210217
  Transmission Date: 20210420
  Serious: Yes (Disabling)
  Sender: FDA-Public Use
  Company Number: None

PATIENT
  Age: 37 Year
  Sex: Female
  Weight: 122.47 kg

DRUGS (4)
  1. NEXPLANON [Suspect]
     Active Substance: ETONOGESTREL
     Indication: CONTRACEPTION
  2. FIBER GUMMIES [Concomitant]
     Active Substance: DIETARY SUPPLEMENT
  3. NEXPLANON [Concomitant]
     Active Substance: ETONOGESTREL
  4. AMOXICILLIN. [Concomitant]
     Active Substance: AMOXICILLIN

REACTIONS (10)
  - Weight increased [None]
  - Hypertension [None]
  - Pain [None]
  - Back pain [None]
  - Obesity [None]
  - Depression [None]
  - Nausea [None]
  - Migraine [None]
  - Chest pain [None]
  - Muscular weakness [None]

NARRATIVE: CASE EVENT DATE: 20181201
